FAERS Safety Report 20706622 (Version 1)
Quarter: 2022Q2

REPORT INFORMATION
  Report Type: Spontaneous
  Country: US (occurrence: US)
  Receive Date: 20220413
  Receipt Date: 20220413
  Transmission Date: 20220721
  Serious: No
  Sender: FDA-Public Use
  Company Number: US-SA-2022SA126679

PATIENT
  Age: 69 Year
  Sex: Female

DRUGS (3)
  1. KEVZARA [Suspect]
     Active Substance: SARILUMAB
     Indication: Rheumatoid arthritis
     Dosage: 200 MG, QOW
     Route: 058
  2. KEVZARA [Suspect]
     Active Substance: SARILUMAB
     Indication: Type IIa hyperlipidaemia
  3. KEVZARA [Suspect]
     Active Substance: SARILUMAB
     Indication: Raynaud^s phenomenon

REACTIONS (2)
  - Back pain [Unknown]
  - Product use in unapproved indication [Unknown]
